FAERS Safety Report 8375915 (Version 2)
Quarter: 2013Q1

REPORT INFORMATION
  Report Type: Report from Study
  Country: US (occurrence: US)
  Receive Date: 20120129
  Receipt Date: 20130128
  Transmission Date: 20140127
  Serious: No
  Sender: FDA-Public Use
  Company Number: US-ABBOTT-11P-163-0883544-00

PATIENT
  Age: 45 Year
  Sex: Female
  Weight: 65.83 kg

DRUGS (1)
  1. HUMIRA 40 MG/0.8 ML PEN [Suspect]
     Indication: PSORIASIS
     Route: 058
     Dates: start: 20110816

REACTIONS (4)
  - Aphthous stomatitis [Recovering/Resolving]
  - Oral mucosa erosion [Recovering/Resolving]
  - Tongue blistering [Not Recovered/Not Resolved]
  - Axillary mass [Not Recovered/Not Resolved]
